FAERS Safety Report 19547901 (Version 1)
Quarter: 2021Q3

REPORT INFORMATION
  Report Type: Spontaneous
  Country: US (occurrence: US)
  Receive Date: 20210714
  Receipt Date: 20210714
  Transmission Date: 20211014
  Serious: Yes (Other)
  Sender: FDA-Public Use
  Company Number: None

PATIENT
  Age: 77 Year
  Sex: Female
  Weight: 52.3 kg

DRUGS (1)
  1. TISAGENLECLEUCEL. [Suspect]
     Active Substance: TISAGENLECLEUCEL
     Indication: DIFFUSE LARGE B-CELL LYMPHOMA
     Dates: start: 20210323, end: 20210412

REACTIONS (6)
  - Cytokine release syndrome [None]
  - Atrial fibrillation [None]
  - Neurotoxicity [None]
  - Hypoaesthesia oral [None]
  - Hypoaesthesia [None]
  - Cerebellar infarction [None]

NARRATIVE: CASE EVENT DATE: 20210328
